FAERS Safety Report 7511844-1 (Version None)
Quarter: 2011Q2

REPORT INFORMATION
  Report Type: 
  Country: None (occurrence: None)
  Receive Date: 20110531
  Receipt Date: 20110523
  Transmission Date: 20111010
  Serious: Yes (Other)
  Sender: FDA-Public Use
  Company Number: US-PFIZER INC-HQWYE590826AUG04

PATIENT
  Sex: Female

DRUGS (10)
  1. PROMETRIUM [Suspect]
     Indication: HORMONE REPLACEMENT THERAPY
     Dosage: UNK
     Dates: start: 19990201, end: 19990301
  2. PREMPRO [Suspect]
     Indication: HORMONE REPLACEMENT THERAPY
     Dosage: UNK
     Route: 048
  3. PREMPHASE (PREMARIN;CYCRIN 14/14) [Suspect]
     Indication: HORMONE REPLACEMENT THERAPY
     Dosage: UNK
     Route: 048
     Dates: start: 19970724, end: 19970824
  4. AYGESTIN [Suspect]
     Indication: HORMONE REPLACEMENT THERAPY
     Dosage: UNK
     Dates: start: 19970903, end: 19990101
  5. PREMARIN [Suspect]
     Indication: HORMONE REPLACEMENT THERAPY
     Dosage: UNK
     Route: 048
     Dates: start: 19970903, end: 19990101
  6. NORETHINDRONE [Suspect]
     Indication: HORMONE REPLACEMENT THERAPY
     Dosage: UNK
  7. LOESTRIN 1.5/30 [Suspect]
     Indication: HORMONE REPLACEMENT THERAPY
     Dosage: UNK
  8. DEMULEN 1/35-21 [Suspect]
     Indication: HORMONE REPLACEMENT THERAPY
     Dosage: UNK
     Dates: start: 19960621, end: 19970301
  9. AYGESTIN [Suspect]
     Dosage: UNK
     Dates: start: 19990301, end: 19990501
  10. PREMARIN [Suspect]
     Dosage: UNK
     Route: 048
     Dates: start: 19990301, end: 19990501

REACTIONS (1)
  - BREAST CANCER METASTATIC [None]
